FAERS Safety Report 20749906 (Version 1)
Quarter: 2022Q2

REPORT INFORMATION
  Report Type: Spontaneous
  Country: US (occurrence: US)
  Receive Date: 20220426
  Receipt Date: 20220426
  Transmission Date: 20220720
  Serious: No
  Sender: FDA-Public Use
  Company Number: US-BAYER-2022A058864

PATIENT
  Age: 50 Year
  Sex: Female

DRUGS (1)
  1. CLARITIN-D 24 HOUR [Suspect]
     Active Substance: LORATADINE\PSEUDOEPHEDRINE SULFATE
     Indication: Multiple allergies
     Dosage: 1 DF, QD

REACTIONS (3)
  - Feeling abnormal [None]
  - Frustration tolerance decreased [None]
  - Nervousness [None]

NARRATIVE: CASE EVENT DATE: 20220401
